FAERS Safety Report 4967117-4 (Version None)
Quarter: 2006Q2

REPORT INFORMATION
  Report Type: 
  Country: None (occurrence: None)
  Receive Date: 20060403
  Receipt Date: 20060317
  Transmission Date: 20061013
  Serious: Yes (Hospitalization)
  Sender: FDA-Public Use
  Company Number: 8015778

PATIENT
  Age: 25 Year
  Sex: Male

DRUGS (5)
  1. KEPPRA [Suspect]
     Indication: CONVULSION
     Dosage: 250 MG /D PO
     Route: 048
     Dates: start: 20060303, end: 20060301
  2. KEPPRA [Suspect]
     Indication: CONVULSION
     Dosage: 500 MG /D PO
     Route: 048
     Dates: start: 20060301, end: 20060301
  3. DEPAKOTE [Concomitant]
  4. TEGRETOL [Concomitant]
  5. LAMICTAL [Concomitant]

REACTIONS (2)
  - BLINDNESS TRANSIENT [None]
  - RASH [None]
